FAERS Safety Report 9193246 (Version 4)
Quarter: 2013Q3

REPORT INFORMATION
  Report Type: Spontaneous
  Country: AU (occurrence: AU)
  Receive Date: 20130327
  Receipt Date: 20130708
  Transmission Date: 20140515
  Serious: Yes (Hospitalization, Disabling, Other)
  Sender: FDA-Public Use
  Company Number: AU-AMGEN-AUSSP2013019633

PATIENT
  Age: 67 Year
  Sex: Male

DRUGS (1)
  1. XGEVA [Suspect]
     Indication: BONE CANCER METASTATIC
     Dosage: 120 MG, QMO
     Route: 058
     Dates: start: 20100101

REACTIONS (4)
  - Pain [Not Recovered/Not Resolved]
  - Rib fracture [Recovering/Resolving]
  - Accident [Recovering/Resolving]
  - Crush injury [Recovering/Resolving]
